FAERS Safety Report 15984357 (Version 4)
Quarter: 2020Q1

REPORT INFORMATION
  Report Type: Report from Study
  Country: DE (occurrence: DE)
  Receive Date: 20190220
  Receipt Date: 20200323
  Transmission Date: 20200409
  Serious: Yes (Disabling, Congenital Anomaly, Other)
  Sender: FDA-Public Use
  Company Number: DE-ACCORD-107852

PATIENT
  Sex: Female
  Weight: 2 kg

DRUGS (9)
  1. IDEOS [Suspect]
     Active Substance: CALCIUM CARBONATE\CHOLECALCIFEROL
     Indication: FOETAL EXPOSURE DURING PREGNANCY
     Route: 064
  2. TACROLIMUS. [Suspect]
     Active Substance: TACROLIMUS
     Indication: FOETAL EXPOSURE DURING PREGNANCY
     Route: 064
  3. FOLIC ACID. [Suspect]
     Active Substance: FOLIC ACID
     Indication: PROPHYLAXIS OF NEURAL TUBE DEFECT
     Dosage: DAILY DOSE: 5 MG MILLIGRAM EVERY DAY
     Route: 064
  4. FLUVASTATIN [Suspect]
     Active Substance: FLUVASTATIN SODIUM
     Indication: FOETAL EXPOSURE DURING PREGNANCY
     Route: 064
  5. PREDNISOLONE. [Suspect]
     Active Substance: PREDNISOLONE
     Indication: FOETAL EXPOSURE DURING PREGNANCY
     Route: 064
  6. FUROSEMIDE. [Suspect]
     Active Substance: FUROSEMIDE
     Indication: FOETAL EXPOSURE DURING PREGNANCY
     Route: 064
  7. RAMIPRIL. [Suspect]
     Active Substance: RAMIPRIL
     Indication: FOETAL EXPOSURE DURING PREGNANCY
     Route: 064
  8. OMEPRAZOLE. [Suspect]
     Active Substance: OMEPRAZOLE
     Indication: FOETAL EXPOSURE DURING PREGNANCY
     Route: 064
  9. TORASEMIDE [Suspect]
     Active Substance: TORSEMIDE
     Indication: FOETAL EXPOSURE DURING PREGNANCY
     Route: 064

REACTIONS (14)
  - Aplasia [Unknown]
  - Premature baby [Unknown]
  - Talipes [Unknown]
  - Foetal exposure during pregnancy [Unknown]
  - Atrial septal defect [Unknown]
  - Limb reduction defect [Not Recovered/Not Resolved]
  - Dysmorphism [Unknown]
  - Patent ductus arteriosus [Unknown]
  - Cleft palate [Unknown]
  - Limb hypoplasia congenital [Unknown]
  - Neck deformity [Unknown]
  - Developmental hip dysplasia [Unknown]
  - Retrognathia [Unknown]
  - Congenital oral malformation [Unknown]

NARRATIVE: CASE EVENT DATE: 20080920
